FAERS Safety Report 5838271-7 (Version None)
Quarter: 2008Q3

REPORT INFORMATION
  Report Type: 
  Country: None (occurrence: None)
  Receive Date: 20080808
  Receipt Date: 20080801
  Transmission Date: 20090109
  Serious: Yes (Hospitalization, Other)
  Sender: FDA-Public Use
  Company Number: US-BAYER-200828938NA

PATIENT
  Sex: Female

DRUGS (3)
  1. LEUKINE [Suspect]
     Indication: NEOPLASM MALIGNANT
     Route: 058
  2. PARAPLATIN [Suspect]
     Indication: NEOPLASM MALIGNANT
  3. ACTIMMUNE [Suspect]
     Indication: NEOPLASM MALIGNANT

REACTIONS (1)
  - SMALL INTESTINAL OBSTRUCTION [None]
